FAERS Safety Report 11160776 (Version 1)
Quarter: 2015Q2

REPORT INFORMATION
  Report Type: Spontaneous
  Country: US (occurrence: US)
  Receive Date: 20150604
  Receipt Date: 20150604
  Transmission Date: 20150821
  Serious: No
  Sender: FDA-Public Use
  Company Number: US-SA-2014SA062974

PATIENT
  Age: 7 Year
  Sex: Male

DRUGS (4)
  1. LANTUS SOLOSTAR [Suspect]
     Active Substance: INSULIN GLARGINE
     Indication: TYPE 1 DIABETES MELLITUS
     Dosage: DOSE AND DAILY DOSE: 45-50 UNITS DAILY
     Route: 065
     Dates: start: 20130817
  2. LANTUS SOLOSTAR [Suspect]
     Active Substance: INSULIN GLARGINE
     Indication: TYPE 1 DIABETES MELLITUS
     Dosage: DOSE AND DAILY DOSE: 45-50 UNITS DAILY
     Route: 065
     Dates: start: 20130817
  3. SOLOSTAR [Concomitant]
     Active Substance: DEVICE
     Indication: DEVICE THERAPY
     Dates: start: 20130817
  4. LANTUS SOLOSTAR [Suspect]
     Active Substance: INSULIN GLARGINE
     Indication: TYPE 1 DIABETES MELLITUS
     Dosage: DOSE AND DAILY DOSE: 45-50 UNITS DAILY
     Route: 065
     Dates: start: 20130817

REACTIONS (1)
  - Blood glucose abnormal [Recovering/Resolving]
